FAERS Safety Report 16730829 (Version 7)
Quarter: 2021Q3

REPORT INFORMATION
  Report Type: Spontaneous
  Country: IT (occurrence: IT)
  Receive Date: 20190822
  Receipt Date: 20210715
  Transmission Date: 20211014
  Serious: Yes (Hospitalization, Other)
  Sender: FDA-Public Use
  Company Number: PHHY2019IT192060

PATIENT
  Age: 23 Year
  Sex: Male
  Weight: 60 kg

DRUGS (4)
  1. MYCOPHENOLIC ACID. [Suspect]
     Active Substance: MYCOPHENOLIC ACID
     Indication: RENAL TRANSPLANT
     Dosage: UNK
     Route: 065
  2. TACROLIMUS. [Suspect]
     Active Substance: TACROLIMUS
     Indication: RENAL TRANSPLANT
     Dosage: UNK
     Route: 065
  3. MYCOPHENOLIC ACID. [Suspect]
     Active Substance: MYCOPHENOLIC ACID
     Indication: IMMUNOSUPPRESSANT DRUG THERAPY
  4. TACROLIMUS. [Suspect]
     Active Substance: TACROLIMUS
     Indication: IMMUNOSUPPRESSANT DRUG THERAPY

REACTIONS (12)
  - Cytokine release syndrome [Recovered/Resolved]
  - Complications of transplanted kidney [Recovering/Resolving]
  - Haemodynamic instability [Recovering/Resolving]
  - Kidney transplant rejection [Recovering/Resolving]
  - Acute respiratory distress syndrome [Recovering/Resolving]
  - Mean arterial pressure decreased [Recovering/Resolving]
  - Metabolic disorder [Recovering/Resolving]
  - Renal impairment [Recovered/Resolved]
  - Lactic acidosis [Recovering/Resolving]
  - Multiple organ dysfunction syndrome [Recovering/Resolving]
  - Respiratory disorder [Recovering/Resolving]
  - Cardiac dysfunction [Recovering/Resolving]
